FAERS Safety Report 4294640-0 (Version None)
Quarter: 2004Q1

REPORT INFORMATION
  Report Type: 
  Country: None (occurrence: None)
  Receive Date: 20040213
  Receipt Date: 20040205
  Transmission Date: 20041129
  Serious: Yes (Hospitalization, Disabling)
  Sender: FDA-Public Use
  Company Number: PHEH2004US01620

PATIENT
  Age: 59 Year
  Sex: Female
  Weight: 61 kg

DRUGS (7)
  1. LAMISIL [Suspect]
     Indication: NAIL TINEA
     Dosage: 250 MG, QD
     Route: 048
     Dates: start: 20030911, end: 20031001
  2. INDERAL [Concomitant]
  3. VALIUM [Concomitant]
  4. PAXIL [Concomitant]
  5. LIPITOR [Concomitant]
  6. COMBIVENT [Concomitant]
  7. PREDNISONE [Concomitant]

REACTIONS (3)
  - CARDIAC PACEMAKER INSERTION [None]
  - MYOCARDIAL INFARCTION [None]
  - TROPONIN INCREASED [None]
